FAERS Safety Report 22322383 (Version 1)
Quarter: 2023Q2

REPORT INFORMATION
  Report Type: Spontaneous
  Country: US (occurrence: US)
  Receive Date: 20230516
  Receipt Date: 20230516
  Transmission Date: 20230721
  Serious: No
  Sender: FDA-Public Use
  Company Number: AXS2022-256

PATIENT
  Sex: Male

DRUGS (30)
  1. SUNOSI [Suspect]
     Active Substance: SOLRIAMFETOL
     Indication: Narcolepsy
     Dosage: TAKE ONE TABLET BY MOUTH EVERY MORNING. TAKE-ONE~HALF TABLET FOR ^3 DAYS, THEN INCREASE TO ONE TABLE
     Route: 048
     Dates: start: 20220913
  2. ACETAMINOPHEN [Concomitant]
     Active Substance: ACETAMINOPHEN
     Indication: Pain
     Dosage: TAKE TWO TABLETS BY MOUTH EVERY 6 HOURS AS NEEDED FOR PAIN. MAX OF 4,000 MG OF ACETAMINOPHEN IN 24 H
     Route: 048
     Dates: start: 20210518
  3. ALENDRONATE [Concomitant]
     Active Substance: ALENDRONATE SODIUM
     Indication: Product used for unknown indication
     Dosage: TAKE 70 MG BY MOUTH EVERY 7 CLAYS. TAKE AT LEAST 30 MINUTES BEFORE BREAKFAST WITH- PLAIN WATER.
     Route: 048
  4. ALPHA LIPOIC ACID [Concomitant]
     Active Substance: .ALPHA.-LIPOIC ACID
     Indication: Product used for unknown indication
     Dosage: TAKE 600 MG BY MOUTH AT BEDTIME
     Route: 048
  5. APIXABAN [Concomitant]
     Active Substance: APIXABAN
     Indication: Product used for unknown indication
     Dosage: TAKE ONE TABLET BY MOUTH TWICE DAILY
     Route: 048
  6. ASCORBIC ACID [Concomitant]
     Active Substance: ASCORBIC ACID
     Indication: Product used for unknown indication
     Dosage: TAKE 500 MG BY MOUTH DAILY
     Route: 048
  7. ASPIRIN [Concomitant]
     Active Substance: ASPIRIN
     Indication: Product used for unknown indication
     Dosage: 81 MG BY MOUTH DAILY
     Route: 048
  8. Calcium Carbonate/Vit.D3 [Concomitant]
     Indication: Product used for unknown indication
     Dosage: TAKE 1 TABLET BY-MOUTH THREE TIMES DAILY. CALCIUM CARB 1250MG DCLELIVERS 500MG ELEMENTAL CA - ORAL
     Route: 048
  9. DESONIDE [Concomitant]
     Active Substance: DESONIDE
     Indication: Product used for unknown indication
     Dosage: 0.05 % TOPICAL CREAM APPLY TO AFFECTED AREAS ON GROIN TWICE DAILY FOR FLARES FOR UP TO 2 WEEKS AT A
     Route: 061
     Dates: start: 20220224
  10. DOCUSATE [Concomitant]
     Active Substance: DOCUSATE
     Indication: Product used for unknown indication
     Dosage: 100 MG TAKE TWO CAPSULES BY MOUTH DAILY
     Route: 048
     Dates: start: 20210518
  11. DOXYCYCLINE HYCLATE [Concomitant]
     Active Substance: DOXYCYCLINE HYCLATE
     Indication: Product used for unknown indication
     Dosage: TAKE ONE TABLET BY MOUTH TWICE DAILY
     Route: 048
     Dates: start: 20220921
  12. ERGOCALCIFEROL [Concomitant]
     Active Substance: ERGOCALCIFEROL
     Indication: Product used for unknown indication
     Dosage: TAKE 1 CAPSULE BY MOUTH EVERY 7 DAYS
     Route: 048
  13. FERROUS SULFATE [Concomitant]
     Active Substance: FERROUS SULFATE
     Indication: Product used for unknown indication
     Dosage: TAKE ONE TABLET BY MOUTH TWICE DAILY.
     Route: 048
     Dates: start: 20210127
  14. Flnasterlde [Concomitant]
     Indication: Product used for unknown indication
     Dosage: TAKE 5 MG BY MOUTH DAILY
     Route: 048
  15. FUROSEMIDE [Concomitant]
     Active Substance: FUROSEMIDE
     Indication: Product used for unknown indication
     Dosage: TAKE 40 MG BYMOUTH EVERY OTHER DAY AS NEEDED.
     Route: 048
  16. GLUCAGON [Concomitant]
     Active Substance: GLUCAGON
     Indication: Product used for unknown indication
     Dosage: USE ^L SPRAY IN SINGLE NOSTRIL. LF NO RESPONSE, MAY REPEAT IN 15 MINUTES USING SECOND DEVICE
     Dates: start: 20210519
  17. ISOSORBIDE MONONITRATE [Concomitant]
     Active Substance: ISOSORBIDE MONONITRATE
     Indication: Product used for unknown indication
     Route: 048
     Dates: start: 20220622
  18. LIDOCAINE [Concomitant]
     Active Substance: LIDOCAINE
     Indication: Product used for unknown indication
     Dosage: APPLY ONE PATCH TOPICALLY TO AFFECTED AREA DAILY. APPLY PATCH FOR 12 HOURS, THEN REMOVE FOR 12 HOURS
     Route: 061
     Dates: start: 20220913
  19. MAGNESIUM CARBONATE [Concomitant]
     Active Substance: MAGNESIUM CARBONATE
     Indication: Product used for unknown indication
  20. MELATONIN [Concomitant]
     Active Substance: MELATONIN
     Indication: Product used for unknown indication
     Dosage: TAKE ONE MOUTH CAPSULE DAILY
     Route: 048
     Dates: start: 20220630
  21. METFORMIN [Concomitant]
     Active Substance: METFORMIN HYDROCHLORIDE
     Indication: Product used for unknown indication
     Dosage: TAKE TWO TABLETS MOUTH DAILY
     Route: 048
  22. METOPROLOL SUCCINATE [Concomitant]
     Active Substance: METOPROLOL SUCCINATE
     Indication: Product used for unknown indication
     Dosage: 50 MG TAKE ONE TABLET BY MOUTH DAILY
     Route: 048
     Dates: start: 20220622
  23. VITAMINS [Concomitant]
     Active Substance: VITAMINS
     Indication: Product used for unknown indication
     Dosage: TAKE 1 TABLET BY MOUTH DAILY
     Route: 048
  24. PANTOPRAZOLE SODIUM [Concomitant]
     Active Substance: PANTOPRAZOLE SODIUM
     Indication: Product used for unknown indication
     Dosage: 40 MG, TAKE ONE TABLET BY MOUTH TWICE DAILY
     Route: 048
     Dates: start: 20220622
  25. PRAMIPEXOLE [Concomitant]
     Active Substance: PRAMIPEXOLE
     Indication: Product used for unknown indication
     Dosage: TAKE ONE AT 8 PM AND 0.5 MG AT 10. PM IF NEEDED
  26. RANOLAZINE [Concomitant]
     Active Substance: RANOLAZINE
     Indication: Product used for unknown indication
     Dosage: TAKE 500 MG BY MOUTH TWICE DAILY.
     Route: 048
  27. ROSUVASTATIN [Concomitant]
     Active Substance: ROSUVASTATIN
     Indication: Product used for unknown indication
     Dosage: TAKE ONE-HALF TABLET BY MOUTH DAILY
     Route: 048
  28. SPIRONOLACTONE [Concomitant]
     Active Substance: SPIRONOLACTONE
     Indication: Product used for unknown indication
     Dosage: TAKE 25 MG BY MOUTH DAILY. TAKE WITH FOOD
     Route: 048
  29. TRAMADOL [Concomitant]
     Active Substance: TRAMADOL
     Indication: Pain
     Dosage: TAKE 1/2 -1 DAILY NEEDED FOR PAIN
     Route: 048
     Dates: start: 20220714
  30. VALACYCLOVIR [Concomitant]
     Active Substance: VALACYCLOVIR HYDROCHLORIDE
     Indication: Product used for unknown indication
     Dosage: TAKE 1000 MG BY MOUTH TWICE DAILY.
     Route: 048
     Dates: start: 20211203

REACTIONS (2)
  - Memory impairment [Recovered/Resolved]
  - Treatment failure [Unknown]
